FAERS Safety Report 9438465 (Version 1)
Quarter: 2013Q3

REPORT INFORMATION
  Report Type: Spontaneous
  Country: US (occurrence: US)
  Receive Date: 20130802
  Receipt Date: 20130802
  Transmission Date: 20140515
  Serious: No
  Sender: FDA-Public Use
  Company Number: US-BRISTOL-MYERS SQUIBB COMPANY-17329475

PATIENT
  Age: 70 Year
  Sex: Female
  Weight: 54.42 kg

DRUGS (3)
  1. WARFARIN SODIUM [Suspect]
     Dosage: DOSES: 4MG, 6MG 2DAYS/WEEK ,4MG 5 DAYS/WEEK
     Dates: start: 201212
  2. ZOCOR [Concomitant]
  3. METOPROLOL [Concomitant]
     Dosage: 1 DF: HALF 25MG TABLET
     Route: 048

REACTIONS (2)
  - Pruritus [Unknown]
  - International normalised ratio increased [Unknown]
